FAERS Safety Report 19489937 (Version 1)
Quarter: 2021Q3

REPORT INFORMATION
  Report Type: Spontaneous
  Country: US (occurrence: US)
  Receive Date: 20210704
  Receipt Date: 20210704
  Transmission Date: 20211014
  Serious: No
  Sender: FDA-Public Use
  Company Number: US-BAUSCH-BL-2021-020124

PATIENT
  Sex: Female

DRUGS (1)
  1. ALAWAY PRESERVATIVE FREE [Suspect]
     Active Substance: KETOTIFEN FUMARATE
     Indication: HYPERSENSITIVITY
     Dosage: SINGLE (6 MONTHS AGO)
     Route: 047

REACTIONS (1)
  - Diarrhoea [Recovered/Resolved]
